FAERS Safety Report 10868595 (Version 2)
Quarter: 2015Q2

REPORT INFORMATION
  Report Type: Report from Study
  Country: US (occurrence: US)
  Receive Date: 20150225
  Receipt Date: 20150516
  Transmission Date: 20150821
  Serious: Yes (Other)
  Sender: FDA-Public Use
  Company Number: PHEH2014US021229

PATIENT
  Age: 67 Year
  Sex: Female

DRUGS (1)
  1. GILENYA [Suspect]
     Active Substance: FINGOLIMOD HYDROCHLORIDE
     Indication: MULTIPLE SCLEROSIS
     Dosage: 0.5 MG, QD
     Route: 048
     Dates: start: 20141021

REACTIONS (14)
  - Oxygen saturation decreased [Unknown]
  - Hypertension [Unknown]
  - Blood pressure decreased [Unknown]
  - Central nervous system lesion [Unknown]
  - JC virus test positive [Unknown]
  - Feeling cold [Unknown]
  - Tremor [Unknown]
  - Headache [Unknown]
  - Palpitations [Unknown]
  - Hypoperfusion [Unknown]
  - Dizziness [Unknown]
  - Fatigue [Unknown]
  - Radial pulse abnormal [Unknown]
  - Heart rate decreased [Unknown]

NARRATIVE: CASE EVENT DATE: 20141021
